FAERS Safety Report 6862739-8 (Version None)
Quarter: 2010Q3

REPORT INFORMATION
  Report Type: 
  Country: None (occurrence: None)
  Receive Date: 20100719
  Receipt Date: 20100705
  Transmission Date: 20110219
  Serious: Yes (Hospitalization, Disabling)
  Sender: FDA-Public Use
  Company Number: AUR-APL-2010-01720

PATIENT
  Age: 71 Year
  Sex: Female
  Weight: 65 kg

DRUGS (7)
  1. BISOPROLOL [Suspect]
     Indication: CARDIAC FAILURE
     Dosage: 1.25MG, ORAL
     Route: 048
     Dates: start: 20091028, end: 20100525
  2. ADCAL-D3 [Concomitant]
  3. ASPIRIN [Concomitant]
  4. EPILIM CHRONO [Concomitant]
  5. FUROSEMIDE [Concomitant]
  6. OMEPRAZOLE [Concomitant]
  7. RAMIPRIL [Concomitant]

REACTIONS (3)
  - COLITIS [None]
  - HYPONATRAEMIA [None]
  - HYPOTENSION [None]
